FAERS Safety Report 4696492-3 (Version None)
Quarter: 2005Q2

REPORT INFORMATION
  Report Type: 
  Country: None (occurrence: None)
  Receive Date: 20050608
  Receipt Date: 20050502
  Transmission Date: 20051028
  Serious: Yes (Life-Threatening)
  Sender: FDA-Public Use
  Company Number: A03200501317

PATIENT
  Age: 50 Year
  Sex: Male
  Weight: 94.3482 kg

DRUGS (10)
  1. ELOXATIN [Suspect]
     Indication: COLON CANCER
     Dosage: 187 MG Q2W - INTRAVENOUS NOS
     Route: 042
     Dates: start: 20050310, end: 20050310
  2. ELOXATIN [Suspect]
     Indication: METASTASES TO LIVER
     Dosage: 187 MG Q2W - INTRAVENOUS NOS
     Route: 042
     Dates: start: 20050310, end: 20050310
  3. ELOXATIN [Suspect]
     Indication: METASTASES TO LUNG
     Dosage: 187 MG Q2W - INTRAVENOUS NOS
     Route: 042
     Dates: start: 20050310, end: 20050310
  4. LEUCOVORIN [Concomitant]
  5. FLUOROURACIL [Concomitant]
  6. BEVACIZUMAB [Concomitant]
  7. CALCIUM GLUCONATE [Concomitant]
  8. DEXAMETHASONE [Concomitant]
  9. MAGNESIUM SULFATE [Concomitant]
  10. PALONOSETRON HYDROCHLORIDE [Concomitant]

REACTIONS (6)
  - BLOOD PRESSURE INCREASED [None]
  - DYSARTHRIA [None]
  - FEELING ABNORMAL [None]
  - FLUSHING [None]
  - MUSCLE TWITCHING [None]
  - SKIN DISCOLOURATION [None]
